FAERS Safety Report 9718638 (Version 1)
Quarter: 2013Q4

REPORT INFORMATION
  Report Type: Spontaneous
  Country: US (occurrence: US)
  Receive Date: 20131125
  Receipt Date: 20131125
  Transmission Date: 20140711
  Serious: No
  Sender: FDA-Public Use
  Company Number: US-VIVUS-2013V1000010

PATIENT
  Age: 51 Year
  Sex: Female
  Weight: 89.44 kg

DRUGS (7)
  1. QSYMIA 3.75MG/23MG [Suspect]
     Indication: WEIGHT DECREASED
     Route: 048
     Dates: start: 20121215, end: 20121228
  2. QSYMIA 7.5MG/46MG [Suspect]
     Indication: WEIGHT DECREASED
     Route: 048
     Dates: start: 20121229, end: 20130105
  3. QSYMIA 7.5MG/46MG [Suspect]
     Route: 048
     Dates: start: 20130107
  4. MULTIVITAMINS [Concomitant]
     Indication: PRODUCT USED FOR UNKNOWN INDICATION
     Route: 048
     Dates: start: 1968
  5. FISH OIL [Concomitant]
     Indication: PRODUCT USED FOR UNKNOWN INDICATION
     Route: 048
     Dates: start: 2003
  6. VITAMIN D3 [Concomitant]
     Indication: VITAMIN D DEFICIENCY
     Route: 048
     Dates: start: 201212
  7. STRESS ADVANTAGE [Concomitant]
     Indication: SLEEP DISORDER
     Route: 048
     Dates: start: 20130105

REACTIONS (6)
  - Mental impairment [Recovering/Resolving]
  - Dizziness [Recovering/Resolving]
  - Headache [Recovering/Resolving]
  - Irritability [Recovering/Resolving]
  - Insomnia [Recovering/Resolving]
  - Disturbance in attention [Recovering/Resolving]
